FAERS Safety Report 10111120 (Version 4)
Quarter: 2015Q2

REPORT INFORMATION
  Report Type: Spontaneous
  Country: US (occurrence: None)
  Receive Date: 20140421
  Receipt Date: 20150420
  Transmission Date: 20150821
  Serious: No
  Sender: FDA-Public Use
  Company Number: AEGR000267

PATIENT
  Age: 60 Year
  Sex: Female
  Weight: 71.2 kg

DRUGS (24)
  1. PROTONIX [Concomitant]
     Active Substance: PANTOPRAZOLE SODIUM
  2. METOPROLOL [Concomitant]
     Active Substance: METOPROLOL
  3. OMEGA (OMEPRAZOLE) [Concomitant]
  4. BETAMETHASONE DIPROPIONATE (BETAMETHASONE DIPROPIONATE) [Concomitant]
     Active Substance: BETAMETHASONE DIPROPIONATE
  5. KLOR-CON (POTASSIUM CHLORIDE) [Concomitant]
  6. BIOTIN [Concomitant]
     Active Substance: BIOTIN
  7. LANSOPRAZOLE. [Concomitant]
     Active Substance: LANSOPRAZOLE
  8. PULMICORT TURBUHALER [Concomitant]
     Active Substance: BUDESONIDE
  9. FISH OIL [Concomitant]
     Active Substance: FISH OIL
  10. DEXILANT [Concomitant]
     Active Substance: DEXLANSOPRAZOLE
  11. LORATADINE. [Concomitant]
     Active Substance: LORATADINE
  12. JUXTAPID [Suspect]
     Active Substance: LOMITAPIDE MESYLATE
     Indication: BLOOD CHOLESTEROL INCREASED
     Route: 048
     Dates: start: 20140404
  13. PLAVIX [Concomitant]
     Active Substance: CLOPIDOGREL BISULFATE
  14. TRIAMTERENE/HCTZ (HYDROCHLOROTHIAZIDE, TRIAMTERENE) [Concomitant]
  15. DIOVAN [Concomitant]
     Active Substance: VALSARTAN
  16. ASPIRIN (ACETYLSALICYLIC ACID) [Concomitant]
     Active Substance: ASPIRIN
  17. NTG (GLYCERYL TRINITRATE) [Concomitant]
     Active Substance: NITROGLYCERIN
  18. ALBUTEROL (SALBUTAMOL SULFATE) [Concomitant]
  19. ISOSORBIDE DINITRATE (ISOSORBIDE DINITRATE) [Concomitant]
  20. PROAIR HFA [Concomitant]
     Active Substance: ALBUTEROL SULFATE
  21. CLOPIDOGREL (CLOPIDOGREL HYDROCHLORIDE) [Concomitant]
  22. LOVAZA [Concomitant]
     Active Substance: OMEGA-3-ACID ETHYL ESTERS
  23. VITAMIN E [Concomitant]
     Active Substance: .ALPHA.-TOCOPHEROL
  24. IBUPROFEN. [Concomitant]
     Active Substance: IBUPROFEN

REACTIONS (12)
  - Hepatic enzyme increased [None]
  - Gastrooesophageal reflux disease [None]
  - Off label use [None]
  - Alopecia [None]
  - Diarrhoea [None]
  - Feeling abnormal [None]
  - Abdominal pain upper [None]
  - Inappropriate schedule of drug administration [None]
  - Drug dose omission [None]
  - Vomiting [None]
  - Hyperhidrosis [None]
  - Fatigue [None]

NARRATIVE: CASE EVENT DATE: 201312
